FAERS Safety Report 19058411 (Version 1)
Quarter: 2021Q1

REPORT INFORMATION
  Report Type: Spontaneous
  Country: AU (occurrence: AU)
  Receive Date: 20210324
  Receipt Date: 20210324
  Transmission Date: 20210420
  Serious: Yes (Hospitalization)
  Sender: FDA-Public Use
  Company Number: AU-SUN PHARMACEUTICAL INDUSTRIES LTD-2021R1-287436

PATIENT
  Age: 56 Year
  Sex: Male
  Weight: 142.6 kg

DRUGS (4)
  1. LITHIUM. [Suspect]
     Active Substance: LITHIUM
     Dosage: 450 MILLIGRAM, BID
     Route: 065
  2. CISPLATIN. [Concomitant]
     Active Substance: CISPLATIN
     Indication: SQUAMOUS CELL CARCINOMA
     Dosage: UNK, WEEKLY
     Route: 065
  3. VENLAFAXINE [Suspect]
     Active Substance: VENLAFAXINE HYDROCHLORIDE
     Indication: DEPRESSION
     Dosage: 150 MILLIGRAM, BID
     Route: 065
  4. LITHIUM. [Suspect]
     Active Substance: LITHIUM
     Indication: DEPRESSION
     Dosage: 675 MILLIGRAM, BID
     Route: 065

REACTIONS (12)
  - Weight decreased [Unknown]
  - Nausea [Unknown]
  - Dyskinesia [Unknown]
  - Hypophagia [Recovered/Resolved]
  - Toxicity to various agents [Unknown]
  - Muscle twitching [Unknown]
  - Dysgeusia [Recovered/Resolved]
  - Tremor [Unknown]
  - Malnutrition [Unknown]
  - Headache [Unknown]
  - Vision blurred [Unknown]
  - Oral candidiasis [Unknown]
